FAERS Safety Report 9861380 (Version 2)
Quarter: 2015Q4

REPORT INFORMATION
  Report Type: Report from Study
  Country: US (occurrence: US)
  Receive Date: 20140203
  Receipt Date: 20151029
  Transmission Date: 20160305
  Serious: Yes (Hospitalization)
  Sender: FDA-Public Use
  Company Number: US-ROCHE-1341790

PATIENT
  Sex: Female

DRUGS (1)
  1. LUCENTIS [Suspect]
     Active Substance: RANIBIZUMAB
     Indication: DIABETIC RETINAL OEDEMA
     Route: 050

REACTIONS (6)
  - Diabetes mellitus [Unknown]
  - Eye disorder [Unknown]
  - Cardiac disorder [Unknown]
  - Renal disorder [Unknown]
  - Malaise [Unknown]
  - Peripheral swelling [Unknown]
